FAERS Safety Report 8696062 (Version 2)
Quarter: 2012Q4

REPORT INFORMATION
  Report Type: 
  Country: US (occurrence: US)
  Receive Date: 20120801
  Receipt Date: 20121231
  Transmission Date: 20130627
  Serious: Yes (Hospitalization)
  Sender: FDA-Public Use
  Company Number: US-BIOGENIDEC-2012BI027069

PATIENT
  Age: 35 Year
  Sex: Male

DRUGS (3)
  1. AVONEX [Suspect]
     Indication: MULTIPLE SCLEROSIS
     Route: 030
     Dates: start: 20010208, end: 20020909
  2. AVONEX [Suspect]
     Indication: MULTIPLE SCLEROSIS
     Route: 030
     Dates: start: 20080318, end: 20120909
  3. TYLENOL [Concomitant]
     Indication: PREMEDICATION

REACTIONS (8)
  - Convulsion [Recovered/Resolved]
  - Decreased immune responsiveness [Unknown]
  - Temperature intolerance [Not Recovered/Not Resolved]
  - Vitreous floaters [Not Recovered/Not Resolved]
  - White blood cell count increased [Unknown]
  - Central nervous system lesion [Unknown]
  - Headache [Recovered/Resolved]
  - Insomnia [Unknown]
